FAERS Safety Report 14119809 (Version 1)
Quarter: 2017Q4

REPORT INFORMATION
  Report Type: Spontaneous
  Country: US (occurrence: US)
  Receive Date: 20171024
  Receipt Date: 20171024
  Transmission Date: 20180321
  Serious: Yes (Hospitalization, Other)
  Sender: FDA-Public Use
  Company Number: None

PATIENT
  Age: 34 Year
  Sex: Male
  Weight: 99 kg

DRUGS (2)
  1. ITRACONAZOLE. [Suspect]
     Active Substance: ITRACONAZOLE
     Indication: TINEA VERSICOLOUR
     Route: 048
     Dates: start: 20171009, end: 20171013
  2. LISINOPRIL/HCTZ [Concomitant]
     Active Substance: HYDROCHLOROTHIAZIDE\LISINOPRIL

REACTIONS (11)
  - Chills [None]
  - Dyspnoea [None]
  - Nausea [None]
  - Syncope [None]
  - Abdominal pain upper [None]
  - Vomiting [None]
  - Diarrhoea [None]
  - Hepatotoxicity [None]
  - Pyrexia [None]
  - Dehydration [None]
  - Muscle spasms [None]

NARRATIVE: CASE EVENT DATE: 20171013
